FAERS Safety Report 6644186-7 (Version None)
Quarter: 2010Q1

REPORT INFORMATION
  Report Type: 
  Country: None (occurrence: None)
  Receive Date: 20100317
  Receipt Date: 20100304
  Transmission Date: 20100710
  Serious: Yes (Death)
  Sender: FDA-Public Use
  Company Number: 1000012386

PATIENT
  Age: 83 Year
  Sex: Male

DRUGS (18)
  1. MEMANTINE HCL [Suspect]
     Indication: DEMENTIA ALZHEIMER'S TYPE
     Dosage: 5 MG (5 MG, 1 IN 1 D), ORAL
     Route: 048
     Dates: start: 20091204, end: 20091208
  2. MEMANTINE HCL [Suspect]
     Indication: DEMENTIA ALZHEIMER'S TYPE
     Dosage: 10 MG (10 MG, 1 IN 1 D), ORAL
     Route: 048
     Dates: start: 20091209, end: 20091215
  3. RISPERDAL [Suspect]
     Indication: DEMENTIA ALZHEIMER'S TYPE
     Dosage: 1 MG (1 MG, 1 IN 1 D), ORAL
     Route: 048
     Dates: start: 20091101, end: 20091228
  4. EQUANIL [Concomitant]
  5. MIRTAZAPINE ARROW (TABLETS) [Concomitant]
  6. HYDREA (500 MILLIGRAM) [Concomitant]
  7. CARDENSIEL (1.25 MILLIGRAM) [Concomitant]
  8. IKOREL (10 MILLIGRAM) [Concomitant]
  9. ESIDREX (25 MILLIGRAM) [Concomitant]
  10. KENZEN (8 MILLIGRAM) [Concomitant]
  11. DISCORTIN (5 MILLIGRAM, POULTICE OR PATCH) [Concomitant]
  12. MINISINTROM [Concomitant]
  13. PLAVIX (75 MILLIGRAM) [Concomitant]
  14. COLCHICINE [Concomitant]
  15. CONTRAMAL [Concomitant]
  16. SOLUPRED [Concomitant]
  17. NEXIUM [Concomitant]
  18. SPECIALFOLDINE [Concomitant]

REACTIONS (10)
  - ACUTE PULMONARY OEDEMA [None]
  - BUNDLE BRANCH BLOCK RIGHT [None]
  - CARDIOMYOPATHY [None]
  - DEHYDRATION [None]
  - ELECTROCARDIOGRAM QT PROLONGED [None]
  - RENAL FAILURE [None]
  - SINUS ARRHYTHMIA [None]
  - SUPRAVENTRICULAR EXTRASYSTOLES [None]
  - TROPONIN INCREASED [None]
  - VENTRICULAR EXTRASYSTOLES [None]
